FAERS Safety Report 17668015 (Version 2)
Quarter: 2020Q2

REPORT INFORMATION
  Report Type: Spontaneous
  Country: DE (occurrence: DE)
  Receive Date: 20200414
  Receipt Date: 20200415
  Transmission Date: 20200713
  Serious: Yes (Other)
  Sender: FDA-Public Use
  Company Number: DE-US-PROVELL PHARMACEUTICALS LLC-E2B_90076550

PATIENT
  Sex: Female

DRUGS (2)
  1. EUTHYROX [Suspect]
     Active Substance: LEVOTHYROXINE SODIUM
     Dosage: DOSE REDUCED SINCE FEB 2020.
  2. EUTHYROX [Suspect]
     Active Substance: LEVOTHYROXINE SODIUM
     Indication: PRODUCT USED FOR UNKNOWN INDICATION
     Dosage: FORM STRENGTH: 125 (UNSPECIFIED UNIT)

REACTIONS (8)
  - Diabetes mellitus [Recovering/Resolving]
  - Feeling cold [Unknown]
  - Thyroid function test abnormal [Recovering/Resolving]
  - Weight decreased [Unknown]
  - Hypothyroidism [Recovering/Resolving]
  - Fatigue [Unknown]
  - Hyperthyroidism [Recovering/Resolving]
  - Blood cholesterol increased [Recovering/Resolving]

NARRATIVE: CASE EVENT DATE: 2018
